FAERS Safety Report 25289933 (Version 1)
Quarter: 2025Q2

REPORT INFORMATION
  Report Type: Spontaneous
  Country: JP (occurrence: JP)
  Receive Date: 20250509
  Receipt Date: 20250509
  Transmission Date: 20250716
  Serious: Yes (Other)
  Sender: MERCK SHARP & DOHME LLC
  Company Number: JP-MSD-M2024-50760

PATIENT
  Age: 8 Decade
  Sex: Male

DRUGS (5)
  1. KEYTRUDA [Suspect]
     Active Substance: PEMBROLIZUMAB
     Indication: Gastric cancer stage IV
     Dosage: DOSE DESCRIPTION : 200 MILLIGRAM, Q3W?DAILY DOSE : 9.4 MILLIGRAM?REGIMEN DOSE : 200  MILLIGRAM
     Route: 041
     Dates: start: 202410
  2. KEYTRUDA [Suspect]
     Active Substance: PEMBROLIZUMAB
     Indication: Gastric cancer stage IV
     Dosage: 4 COURSES
     Route: 041
     Dates: start: 20250307
  3. TS-1 [Suspect]
     Active Substance: GIMERACIL\OTERACIL POTASSIUM\TEGAFUR
     Indication: Gastric cancer stage IV
     Dosage: 120 MG, EVERY 3 WEEKS
     Route: 048
     Dates: start: 202410
  4. OXALIPLATIN [Suspect]
     Active Substance: OXALIPLATIN
     Indication: Gastric cancer stage IV
     Dosage: DOSE DESCRIPTION : 130 MILLIGRAM/SQ. METER, Q3W?DAILY DOSE : 6.11 MILLIGRAM/SQ. METER?REGIMEN DOS...
     Route: 065
     Dates: start: 20250307
  5. OXALIPLATIN [Suspect]
     Active Substance: OXALIPLATIN
     Indication: Gastric cancer stage IV
     Dosage: DOSE DESCRIPTION : 130 MILLIGRAM/SQ. METER, Q3W?DAILY DOSE : 6.11 MILLIGRAM/SQ. METER?REGIMEN DOS...
     Route: 065
     Dates: start: 202410

REACTIONS (6)
  - Malignant neoplasm progression [Recovering/Resolving]
  - Product use issue [Unknown]
  - Malaise [Recovered/Resolved]
  - Cholecystitis [Recovered/Resolved]
  - Hepatic function abnormal [Recovering/Resolving]
  - Decreased appetite [Recovered/Resolved]

NARRATIVE: CASE EVENT DATE: 20241001
